FAERS Safety Report 23301582 (Version 1)
Quarter: 2023Q4

REPORT INFORMATION
  Report Type: Spontaneous
  Country: US (occurrence: US)
  Receive Date: 20231215
  Receipt Date: 20231215
  Transmission Date: 20240110
  Serious: No
  Sender: FDA-Public Use
  Company Number: US-BAYER-2023A178079

PATIENT
  Age: 83 Year
  Sex: Female

DRUGS (1)
  1. ALEVE BACK AND MUSCLE PAIN [Suspect]
     Active Substance: NAPROXEN SODIUM
     Indication: Pain
     Dosage: 1 TABLET IN EVERY 12 HOURS
     Route: 048
     Dates: start: 20231207, end: 20231211

REACTIONS (2)
  - Drug ineffective [Unknown]
  - Pain [Unknown]
